FAERS Safety Report 13812626 (Version 1)
Quarter: 2017Q3

REPORT INFORMATION
  Report Type: Spontaneous
  Country: JP (occurrence: JP)
  Receive Date: 20170728
  Receipt Date: 20170728
  Transmission Date: 20171127
  Serious: Yes (Hospitalization, Other)
  Sender: FDA-Public Use
  Company Number: JP-AMGEN-JPNSP2017114952

PATIENT
  Age: 80 Year
  Sex: Male

DRUGS (11)
  1. VINCRISTINE SULFATE. [Suspect]
     Active Substance: VINCRISTINE SULFATE
     Indication: DIFFUSE LARGE B-CELL LYMPHOMA
     Dosage: UNK
     Route: 041
     Dates: start: 201504
  2. G-LASTA [Suspect]
     Active Substance: PEGFILGRASTIM
     Indication: BONE MARROW FAILURE
     Dosage: UNK
     Route: 065
  3. GRAN [Suspect]
     Active Substance: FILGRASTIM
     Indication: BONE MARROW FAILURE
     Dosage: UNK
     Route: 065
  4. ETOPOSIDE. [Suspect]
     Active Substance: ETOPOSIDE
     Indication: DIFFUSE LARGE B-CELL LYMPHOMA
     Dosage: UNK
     Route: 041
     Dates: start: 201504
  5. GANCICLOVIR. [Concomitant]
     Active Substance: GANCICLOVIR
     Dosage: 5 MG/KG, QD
     Route: 041
  6. RITUXIMAB RECOMBINANT [Suspect]
     Active Substance: RITUXIMAB
     Indication: DIFFUSE LARGE B-CELL LYMPHOMA
     Dosage: UNK
     Route: 041
     Dates: start: 201504
  7. ADRIACIN [Suspect]
     Active Substance: DOXORUBICIN HYDROCHLORIDE
     Indication: DIFFUSE LARGE B-CELL LYMPHOMA
     Dosage: UNK
     Route: 041
     Dates: start: 201504
  8. GANCICLOVIR. [Concomitant]
     Active Substance: GANCICLOVIR
     Indication: CYTOMEGALOVIRUS CHORIORETINITIS
     Dosage: 5 MG/KG, BID
     Route: 041
  9. VALGANCICLOVIR HYDROCHLORIDE. [Concomitant]
     Active Substance: VALGANCICLOVIR HYDROCHLORIDE
     Dosage: UNK
  10. PREDNISOLONE. [Suspect]
     Active Substance: PREDNISOLONE
     Indication: DIFFUSE LARGE B-CELL LYMPHOMA
     Dosage: UNK
     Route: 065
     Dates: start: 201504
  11. CYCLOPHOSPHAMIDE. [Suspect]
     Active Substance: CYCLOPHOSPHAMIDE
     Indication: DIFFUSE LARGE B-CELL LYMPHOMA
     Dosage: UNK
     Route: 041
     Dates: start: 201504

REACTIONS (2)
  - Cytomegalovirus chorioretinitis [Recovering/Resolving]
  - Bone marrow failure [Unknown]
